FAERS Safety Report 7678216-0 (Version None)
Quarter: 2011Q3

REPORT INFORMATION
  Report Type: 
  Country: None (occurrence: None)
  Receive Date: 20110811
  Receipt Date: 20110802
  Transmission Date: 20111222
  Serious: Yes (Other)
  Sender: FDA-Public Use
  Company Number: CO-ELI_LILLY_AND_COMPANY-CO201108002542

PATIENT
  Age: 66 Year
  Sex: Male

DRUGS (13)
  1. HUMULIN N [Suspect]
     Indication: TYPE 2 DIABETES MELLITUS
     Dosage: 10 IU, EACH EVENING
  2. METFORMIN AND SITAGLIPTIN [Concomitant]
     Dosage: UNK, BID
  3. ROSUVASTATIN [Concomitant]
     Dosage: 20 MG, UNKNOWN
  4. ISORDIL [Concomitant]
     Indication: CHEST PAIN
     Dosage: 10 MG, OTHER
  5. ACETYLSALICYLIC ACID SRT [Concomitant]
     Dosage: UNK
  6. SUCRALFATE [Concomitant]
     Dosage: UNK
  7. TRAZODONE HCL [Concomitant]
     Dosage: 50 MG, QD
  8. ENALAPRIL MALEATE [Concomitant]
     Dosage: UNK
  9. HUMALOG [Suspect]
     Indication: TYPE 2 DIABETES MELLITUS
     Dosage: 4 IU, TID
     Route: 058
  10. IVABRADINE [Concomitant]
     Dosage: 10 MG, BID
  11. METOPROLOL TARTRATE [Concomitant]
     Dosage: 100 MG, TID
  12. ISORDIL [Concomitant]
     Dosage: 5 MG, UNKNOWN
     Route: 060
  13. OMEPRAZOLE [Concomitant]
     Dosage: UNK

REACTIONS (7)
  - HYPERGLYCAEMIA [None]
  - NAUSEA [None]
  - TACHYCARDIA [None]
  - ASPHYXIA [None]
  - MYOCARDIAL INFARCTION [None]
  - VOMITING [None]
  - CHEST PAIN [None]
